FAERS Safety Report 5888074-2 (Version None)
Quarter: 2008Q3

REPORT INFORMATION
  Report Type: 
  Country: None (occurrence: None)
  Receive Date: 20080918
  Receipt Date: 20080905
  Transmission Date: 20090109
  Serious: Yes (Other)
  Sender: FDA-Public Use
  Company Number: IN-BAXTER-2008BH009086

PATIENT
  Age: 65 Year
  Sex: Male

DRUGS (1)
  1. LACTATED RINGER'S [Suspect]
     Indication: EYE IRRIGATION
     Dosage: DOSE UNIT:UNKNOWN
     Route: 061
     Dates: start: 20080729, end: 20080729

REACTIONS (2)
  - BLINDNESS [None]
  - PAIN [None]
